FAERS Safety Report 4613353-6 (Version None)
Quarter: 2005Q1

REPORT INFORMATION
  Report Type: 
  Country: None (occurrence: None)
  Receive Date: 20050316
  Receipt Date: 20050303
  Transmission Date: 20050727
  Serious: Yes (Hospitalization)
  Sender: FDA-Public Use
  Company Number: 2005042211

PATIENT
  Age: 62 Year
  Sex: Female

DRUGS (1)
  1. UNASYN [Suspect]
     Indication: BRONCHITIS
     Dosage: INTRAMUSCULAR
     Route: 030

REACTIONS (4)
  - CIRCULATORY COLLAPSE [None]
  - GENERALISED ERYTHEMA [None]
  - INCONTINENCE [None]
  - PRURITUS [None]
